FAERS Safety Report 8185469-1 (Version None)
Quarter: 2012Q1

REPORT INFORMATION
  Report Type: 
  Country: None (occurrence: None)
  Receive Date: 20120305
  Receipt Date: 20120227
  Transmission Date: 20120608
  Serious: Yes (Other)
  Sender: FDA-Public Use
  Company Number: BR-PFIZER INC-2012051988

PATIENT
  Age: 32 Year
  Sex: Female

DRUGS (1)
  1. XALATAN [Suspect]
     Indication: OPEN ANGLE GLAUCOMA
     Dosage: 3 UG, 1X/DAY (ONE DROP EACH EYE, ONCE A DAY)
     Route: 047
     Dates: start: 19991021, end: 20110927

REACTIONS (2)
  - INTRAOCULAR PRESSURE INCREASED [None]
  - INTRAOCULAR PRESSURE TEST ABNORMAL [None]
